FAERS Safety Report 10633206 (Version 1)
Quarter: 2014Q4

REPORT INFORMATION
  Report Type: Spontaneous
  Country: US (occurrence: US)
  Receive Date: 20141205
  Receipt Date: 20141205
  Transmission Date: 20150529
  Serious: No
  Sender: FDA-Public Use
  Company Number: US-BRISTOL-MYERS SQUIBB COMPANY-21430236

PATIENT
  Age: 89 Year
  Sex: Male
  Weight: 88.43 kg

DRUGS (10)
  1. OMEPRAZOLE. [Concomitant]
     Active Substance: OMEPRAZOLE
  2. TORASEMIDE [Concomitant]
     Active Substance: TORSEMIDE
  3. AMLODIPINE [Concomitant]
     Active Substance: AMLODIPINE BESYLATE
  4. POTASSIUM [Concomitant]
     Active Substance: POTASSIUM
  5. LOSARTAN [Concomitant]
     Active Substance: LOSARTAN
  6. NABUMETONE. [Concomitant]
     Active Substance: NABUMETONE
  7. CILOSTAZOL. [Concomitant]
     Active Substance: CILOSTAZOL
  8. ELIQUIS [Suspect]
     Active Substance: APIXABAN
  9. GEMFIBROZIL. [Concomitant]
     Active Substance: GEMFIBROZIL
  10. AMIODARONE [Concomitant]
     Active Substance: AMIODARONE

REACTIONS (2)
  - Rash erythematous [Unknown]
  - Pruritus [Unknown]
